FAERS Safety Report 11340789 (Version 1)
Quarter: 2015Q3

REPORT INFORMATION
  Report Type: Spontaneous
  Country: GB (occurrence: GB)
  Receive Date: 20150805
  Receipt Date: 20150805
  Transmission Date: 20151125
  Serious: Yes (Hospitalization, Disabling)
  Sender: FDA-Public Use
  Company Number: GB-DSJP-DSE-2014-123189

PATIENT

DRUGS (3)
  1. TRIMETHOPRIM. [Concomitant]
     Active Substance: TRIMETHOPRIM
     Indication: DIVERTICULITIS
     Dosage: UNK
     Route: 048
     Dates: start: 20130121
  2. OLMETEC 10 MG [Suspect]
     Active Substance: OLMESARTAN MEDOXOMIL
     Indication: ESSENTIAL HYPERTENSION
     Dosage: UNK
     Route: 048
     Dates: start: 20130219, end: 20130418
  3. OLMETEC PLUS 40 MG/ 12.5 MG [Suspect]
     Active Substance: HYDROCHLOROTHIAZIDE\OLMESARTAN MEDOXOMIL
     Indication: ESSENTIAL HYPERTENSION
     Dosage: 40/12.5 MG, QD
     Route: 048
     Dates: start: 20100409, end: 2013

REACTIONS (5)
  - Anxiety [Not Recovered/Not Resolved]
  - Malabsorption [Recovered/Resolved with Sequelae]
  - Fear of death [Recovered/Resolved]
  - Pneumonia [Unknown]
  - Gout [Unknown]

NARRATIVE: CASE EVENT DATE: 2013
